FAERS Safety Report 9171063 (Version 1)
Quarter: 2013Q1

REPORT INFORMATION
  Report Type: Report from Study
  Country: CO (occurrence: CO)
  Receive Date: 20130319
  Receipt Date: 20130319
  Transmission Date: 20140127
  Serious: Yes (Hospitalization)
  Sender: FDA-Public Use
  Company Number: CO-SANOFI-AVENTIS-2013SA026452

PATIENT
  Age: 77 Year
  Sex: Female

DRUGS (6)
  1. INSULIN GLARGINE [Suspect]
     Indication: DIABETES MELLITUS
     Route: 058
     Dates: start: 2009
  2. TRAZODONE [Concomitant]
     Route: 048
  3. METFORMIN [Concomitant]
     Indication: DIABETES MELLITUS
     Route: 048
  4. FUROSEMIDE [Concomitant]
     Indication: HYPERTENSION
     Route: 048
  5. CLOPIDOGREL [Concomitant]
     Indication: CORONARY ARTERY DISEASE
     Route: 048
  6. ISOSORBIDE DINITRATE [Concomitant]
     Indication: CORONARY ARTERY DISEASE
     Route: 060

REACTIONS (1)
  - Myocardial infarction [Not Recovered/Not Resolved]
